FAERS Safety Report 5163234-7 (Version None)
Quarter: 2006Q4

REPORT INFORMATION
  Report Type: 
  Country: None (occurrence: None)
  Receive Date: 20061204
  Receipt Date: 20060302
  Transmission Date: 20070319
  Serious: Yes (Hospitalization, Other)
  Sender: FDA-Public Use
  Company Number: US-ELI_LILLY_AND_COMPANY-US200603003208

PATIENT
  Age: 58 Year
  Sex: Male
  Weight: 212 kg

DRUGS (3)
  1. HALOPERIDOL [Concomitant]
     Dates: start: 19750101, end: 19980101
  2. ZYPREXA [Suspect]
     Dosage: 10 MG, UNK
     Dates: start: 19960101
  3. ZYPREXA [Suspect]
     Dosage: 15 MG, UNK

REACTIONS (7)
  - BLOOD CHOLESTEROL ABNORMAL [None]
  - BLOOD TRIGLYCERIDES INCREASED [None]
  - CARDIAC OPERATION [None]
  - DIABETES MELLITUS [None]
  - GLYCOSURIA [None]
  - MYOCARDIAL ISCHAEMIA [None]
  - VISION BLURRED [None]
